FAERS Safety Report 6154564-0 (Version None)
Quarter: 2009Q2

REPORT INFORMATION
  Report Type: 
  Country: None (occurrence: None)
  Receive Date: 20090414
  Receipt Date: 20090408
  Transmission Date: 20091009
  Serious: Yes (Death, Hospitalization, Other)
  Sender: FDA-Public Use
  Company Number: US-CELGENEUS-163-21880-08121518

PATIENT
  Sex: Female

DRUGS (2)
  1. REVLIMID [Suspect]
     Indication: MULTIPLE MYELOMA
     Route: 048
     Dates: start: 20080701, end: 20081118
  2. REVLIMID [Suspect]
     Route: 048
     Dates: start: 20080806, end: 20081211

REACTIONS (8)
  - CONVULSION [None]
  - DEATH [None]
  - DEEP VEIN THROMBOSIS [None]
  - DEHYDRATION [None]
  - HYPOTENSION [None]
  - MYOPATHY [None]
  - RETROPERITONEAL HAEMORRHAGE [None]
  - SEPSIS [None]
